FAERS Safety Report 6701992-8 (Version None)
Quarter: 2010Q2

REPORT INFORMATION
  Report Type: 
  Country: None (occurrence: None)
  Receive Date: 20100429
  Receipt Date: 20100421
  Transmission Date: 20101027
  Serious: Yes (Other)
  Sender: FDA-Public Use
  Company Number: CH-ROCHE-698912

PATIENT
  Age: 10 Year
  Sex: Female

DRUGS (3)
  1. TAMIFLU [Suspect]
     Indication: INFLUENZA
     Route: 048
     Dates: start: 20091125, end: 20091130
  2. SERETIDE [Concomitant]
     Dosage: DURATION OF USE: LONG TERM; ROUTE: RESPIRATORY
     Route: 055
  3. PARACETAMOL [Concomitant]
     Dosage: DURATION OF USE: LONG TERM

REACTIONS (1)
  - NIGHTMARE [None]
